FAERS Safety Report 9306370 (Version 4)
Quarter: 2013Q4

REPORT INFORMATION
  Report Type: Spontaneous
  Country: US (occurrence: US)
  Receive Date: 20130523
  Receipt Date: 20131101
  Transmission Date: 20140711
  Serious: Yes (Hospitalization, Other)
  Sender: FDA-Public Use
  Company Number: US-PFIZER INC-2013156035

PATIENT
  Age: 73 Year
  Sex: Male
  Weight: 90.7 kg

DRUGS (7)
  1. CHANTIX [Suspect]
     Indication: SMOKING CESSATION THERAPY
     Dosage: 0.5 MG, 1X/DAY
     Route: 048
     Dates: start: 201304, end: 201307
  2. BABY ASPIRIN [Concomitant]
     Dosage: 81 MG, 1X/DAY
  3. LIPITOR [Concomitant]
     Dosage: 10 MG, 1X/DAY
  4. LASIX [Concomitant]
     Dosage: 40MG IN THE MORNING AND 20MG IN THE EVENING, 2X/DAY
  5. CARVEDILOL [Concomitant]
     Dosage: UNK, 2X/DAY
  6. CO-Q-10 [Concomitant]
     Dosage: UNK, 1X/DAY
  7. CLOPIDOGREL [Concomitant]
     Dosage: 75 MG, 1X/DAY

REACTIONS (1)
  - Myocardial infarction [Unknown]
